FAERS Safety Report 9587280 (Version 1)
Quarter: 2013Q4

REPORT INFORMATION
  Report Type: Spontaneous
  Country: US (occurrence: None)
  Receive Date: 20131003
  Receipt Date: 20131003
  Transmission Date: 20140711
  Serious: Yes (Death)
  Sender: FDA-Public Use
  Company Number: None

PATIENT
  Age: 91 Year
  Sex: Male

DRUGS (1)
  1. EXJADE [Suspect]
     Indication: UNEVALUABLE EVENT
     Route: 048
     Dates: start: 20121022, end: 20130902

REACTIONS (1)
  - Death [None]
